FAERS Safety Report 16430816 (Version 1)
Quarter: 2019Q2

REPORT INFORMATION
  Report Type: Spontaneous
  Country: GB (occurrence: GB)
  Receive Date: 20190614
  Receipt Date: 20190614
  Transmission Date: 20190711
  Serious: Yes (Other)
  Sender: FDA-Public Use
  Company Number: GB-TEVA-2019-GB-1061560

PATIENT
  Age: 55 Year
  Sex: Male
  Weight: 120 kg

DRUGS (8)
  1. WARFARIN [Suspect]
     Active Substance: WARFARIN
     Indication: AORTIC VALVE REPLACEMENT
     Route: 065
  2. ADIZEM [Concomitant]
     Active Substance: DILTIAZEM HYDROCHLORIDE
  3. LANSOPRAZOLE. [Concomitant]
     Active Substance: LANSOPRAZOLE
  4. SPIRONOLACTONE. [Concomitant]
     Active Substance: SPIRONOLACTONE
  5. ALLOPURINOL. [Concomitant]
     Active Substance: ALLOPURINOL
  6. RAMIPRIL. [Concomitant]
     Active Substance: RAMIPRIL
  7. CANNABIS EKSTRACT (THC) [Suspect]
     Active Substance: CANNABIS SATIVA SUBSP. INDICA TOP
     Route: 065
     Dates: start: 20190325, end: 20190429
  8. ATORVASTATIN [Concomitant]
     Active Substance: ATORVASTATIN

REACTIONS (1)
  - International normalised ratio fluctuation [Recovered/Resolved]

NARRATIVE: CASE EVENT DATE: 20190325
